FAERS Safety Report 5723088-4 (Version None)
Quarter: 2008Q2

REPORT INFORMATION
  Report Type: 
  Country: None (occurrence: None)
  Receive Date: 20080430
  Receipt Date: 20080402
  Transmission Date: 20081010
  Serious: Yes (Other)
  Sender: FDA-Public Use
  Company Number: FR-JNJFOC-20080400712

PATIENT
  Age: 3 Month

DRUGS (1)
  1. PROPULSID [Suspect]
     Indication: DRUG USE FOR UNKNOWN INDICATION
     Route: 048

REACTIONS (2)
  - REGURGITATION [None]
  - SLEEP APNOEA SYNDROME [None]
